FAERS Safety Report 4684937-4 (Version None)
Quarter: 2005Q2

REPORT INFORMATION
  Report Type: 
  Country: None (occurrence: None)
  Receive Date: 20050603
  Receipt Date: 20050517
  Transmission Date: 20051028
  Serious: Yes (Other)
  Sender: FDA-Public Use
  Company Number: US135949

PATIENT
  Age: 73 Year
  Sex: Female

DRUGS (4)
  1. ENBREL [Suspect]
     Indication: RHEUMATOID ARTHRITIS
  2. SULFASALAZINE [Concomitant]
  3. NISISCO (HYDROCHLOROTHIAZIDE, VALSARTAN) [Concomitant]
  4. PRAZOSIN [Concomitant]

REACTIONS (2)
  - CHRONIC INFLAMMATORY DEMYELINATING POLYRADICULONEUROPATHY [None]
  - IMMUNE SYSTEM DISORDER [None]
